FAERS Safety Report 13761735 (Version 4)
Quarter: 2019Q4

REPORT INFORMATION
  Report Type: Spontaneous
  Country: BR (occurrence: BR)
  Receive Date: 20170718
  Receipt Date: 20191122
  Transmission Date: 20200122
  Serious: Yes (Death, Disabling, Other)
  Sender: FDA-Public Use
  Company Number: BR-AMGEN-BRASP2017107862

PATIENT
  Age: 56 Year
  Sex: Male
  Weight: 84 kg

DRUGS (8)
  1. AZULFIDINE [Concomitant]
     Active Substance: SULFASALAZINE
     Dosage: UNK
  2. ENBREL [Suspect]
     Active Substance: ETANERCEPT
     Indication: RHEUMATOID ARTHRITIS
     Dosage: 50 MILLIGRAM, QWK
     Route: 065
     Dates: start: 201307
  3. TECNOMET [METHOTREXATE SODIUM] [Concomitant]
     Active Substance: METHOTREXATE SODIUM
     Dosage: UNK
  4. PRELONE [PREDNISOLONE SODIUM PHOSPHATE] [Concomitant]
     Indication: PRODUCT USED FOR UNKNOWN INDICATION
     Dosage: UNK
     Route: 065
  5. FOLIC ACID. [Concomitant]
     Active Substance: FOLIC ACID
     Dosage: UNK
  6. DEFLAZACORT [Concomitant]
     Active Substance: DEFLAZACORT
     Dosage: UNK
  7. TECNOMET [METHOTREXATE SODIUM] [Concomitant]
     Active Substance: METHOTREXATE SODIUM
     Dosage: UNK
  8. PRELONE [PREDNISOLONE SODIUM PHOSPHATE] [Concomitant]
     Dosage: UNK

REACTIONS (11)
  - Rheumatoid arthritis [Fatal]
  - Body height decreased [Recovered/Resolved]
  - Gait inability [Recovered/Resolved]
  - Condition aggravated [Recovered/Resolved]
  - Drug ineffective [Recovered/Resolved]
  - Dysstasia [Recovered/Resolved]
  - Finger deformity [Recovered/Resolved]
  - Foot deformity [Recovered/Resolved]
  - Arthropathy [Recovered/Resolved]
  - Atrophy [Recovered/Resolved]
  - Musculoskeletal stiffness [Recovered/Resolved]

NARRATIVE: CASE EVENT DATE: 201811
